FAERS Safety Report 10346984 (Version 1)
Quarter: 2014Q3

REPORT INFORMATION
  Report Type: Spontaneous
  Country: US (occurrence: None)
  Receive Date: 20140725
  Receipt Date: 20140725
  Transmission Date: 20150326
  Serious: Yes (Disabling)
  Sender: FDA-Public Use
  Company Number: None

PATIENT
  Age: 47 Year
  Sex: Male
  Weight: 75.3 kg

DRUGS (1)
  1. XEOMIN [Suspect]
     Active Substance: INCOBOTULINUMTOXINA
     Indication: TOURETTE^S DISORDER
     Dosage: NOT SURE, EVERY THREE MONTHS  INTO THE MUSCLE
     Route: 030
     Dates: start: 20131118, end: 20140718

REACTIONS (11)
  - Burning sensation [None]
  - Fatigue [None]
  - Insomnia [None]
  - Tourette^s disorder [None]
  - Intranasal hypoaesthesia [None]
  - Muscle twitching [None]
  - Hypoaesthesia teeth [None]
  - Hypoaesthesia [None]
  - Formication [None]
  - Malaise [None]
  - Hyperchlorhydria [None]

NARRATIVE: CASE EVENT DATE: 20140628
